FAERS Safety Report 18348278 (Version 1)
Quarter: 2020Q4

REPORT INFORMATION
  Report Type: Spontaneous
  Country: BR (occurrence: BR)
  Receive Date: 20201006
  Receipt Date: 20201006
  Transmission Date: 20210114
  Serious: Yes (Hospitalization, Other)
  Sender: FDA-Public Use
  Company Number: BR-LUPIN PHARMACEUTICALS INC.-2020-06857

PATIENT
  Age: 72 Year
  Sex: Female

DRUGS (4)
  1. METHYLPREDNISOLONE. [Suspect]
     Active Substance: METHYLPREDNISOLONE
     Indication: LARYNGOSPASM
     Dosage: 75 MILLIGRAM (8/8HOURS)
     Route: 042
  2. SODIUM CHLORIDE. [Suspect]
     Active Substance: SODIUM CHLORIDE
     Indication: HYPERNATRAEMIA
     Dosage: UNK (VIA NASOENTERIC FEEDING TUBE  )
  3. FUROSEMIDE. [Suspect]
     Active Substance: FUROSEMIDE
     Indication: HYPERTENSION
  4. FUROSEMIDE. [Suspect]
     Active Substance: FUROSEMIDE
     Indication: ACUTE PULMONARY OEDEMA
     Dosage: 40 MILLIGRAM, QD
     Route: 042

REACTIONS (10)
  - Condition aggravated [Recovering/Resolving]
  - Blood urea increased [Recovering/Resolving]
  - Polyuria [Recovering/Resolving]
  - Metabolic alkalosis [Recovering/Resolving]
  - Drug ineffective [Unknown]
  - Hypokalaemia [Recovering/Resolving]
  - Hypernatraemia [Recovering/Resolving]
  - Hypervolaemia [Recovering/Resolving]
  - Hypertension [Unknown]
  - Haemorrhagic stroke [Unknown]
